FAERS Safety Report 24455342 (Version 2)
Quarter: 2024Q4

REPORT INFORMATION
  Report Type: Report from Study
  Country: CA (occurrence: CA)
  Receive Date: 20241017
  Receipt Date: 20241018
  Transmission Date: 20250115
  Serious: No
  Sender: ROCHE
  Company Number: CA-ROCHE-3485384

PATIENT
  Age: 76 Year
  Sex: Male

DRUGS (17)
  1. RITUXAN [Suspect]
     Active Substance: RITUXIMAB
     Indication: Polymyositis
     Dosage: DRUG DOSE FIRST ADMINISTERED IS 1000 MG MILLIGRAM(S)MOREDOSAGEINFO IS DAY 1, DAY 15
     Route: 041
     Dates: start: 20170621
  2. ASPIRIN [Concomitant]
     Active Substance: ASPIRIN
  3. CALCIUM [Concomitant]
     Active Substance: CALCIUM
  4. CLOPIDOGREL [Concomitant]
     Active Substance: CLOPIDOGREL BISULFATE
  5. EMPAGLIFLOZIN [Concomitant]
     Active Substance: EMPAGLIFLOZIN
  6. EVOLOCUMAB [Concomitant]
     Active Substance: EVOLOCUMAB
  7. EZETIMIBE [Concomitant]
     Active Substance: EZETIMIBE
  8. FOLIC ACID [Concomitant]
     Active Substance: FOLIC ACID
  9. METFORMIN [Concomitant]
     Active Substance: METFORMIN HYDROCHLORIDE
  10. METHOTREXATE [Concomitant]
     Active Substance: METHOTREXATE
  11. METOPROLOL [Concomitant]
     Active Substance: METOPROLOL
  12. MYCOPHENOLIC ACID [Concomitant]
     Active Substance: MYCOPHENOLIC ACID
  13. NITROGLYCERIN [Concomitant]
     Active Substance: NITROGLYCERIN
  14. PREDNISONE [Concomitant]
     Active Substance: PREDNISONE
  15. RISEDRONATE SODIUM [Concomitant]
     Active Substance: RISEDRONATE SODIUM
  16. RIVAROXABAN [Concomitant]
     Active Substance: RIVAROXABAN
  17. VITAMIN D [Concomitant]
     Active Substance: VITAMIN D NOS

REACTIONS (2)
  - Blood cholesterol increased [Unknown]
  - Gastrooesophageal reflux disease [Recovered/Resolved]

NARRATIVE: CASE EVENT DATE: 20230101
